FAERS Safety Report 23021410 (Version 2)
Quarter: 2023Q4

REPORT INFORMATION
  Report Type: Spontaneous
  Country: KR (occurrence: KR)
  Receive Date: 20231003
  Receipt Date: 20231016
  Transmission Date: 20240109
  Serious: Yes (Disabling)
  Sender: FDA-Public Use
  Company Number: KR-GILEAD-2023-0645309

PATIENT
  Age: 73 Year
  Sex: Male

DRUGS (1)
  1. VEMLIDY [Suspect]
     Active Substance: TENOFOVIR ALAFENAMIDE FUMARATE
     Indication: Hepatitis B
     Dosage: UNK
     Route: 065

REACTIONS (1)
  - Alanine aminotransferase abnormal [Not Recovered/Not Resolved]

NARRATIVE: CASE EVENT DATE: 20230921
